FAERS Safety Report 7726183-3 (Version None)
Quarter: 2011Q3

REPORT INFORMATION
  Report Type: 
  Country: None (occurrence: None)
  Receive Date: 20110902
  Receipt Date: 20110824
  Transmission Date: 20111222
  Serious: Yes (Death, Hospitalization, Other)
  Sender: FDA-Public Use
  Company Number: US-ACTELION-A-NJ2011-45430

PATIENT

DRUGS (4)
  1. TRACLEER [Suspect]
     Indication: PULMONARY ARTERIAL HYPERTENSION
     Dosage: UNK
     Route: 048
     Dates: start: 20081001, end: 20110729
  2. CAPTOPRIL [Concomitant]
  3. REVATIO [Concomitant]
  4. LASIX [Concomitant]

REACTIONS (4)
  - DEATH [None]
  - DYSPNOEA [None]
  - OEDEMA PERIPHERAL [None]
  - CARDIAC FAILURE [None]
